FAERS Safety Report 7954335-6 (Version None)
Quarter: 2011Q4

REPORT INFORMATION
  Report Type: 
  Country: None (occurrence: None)
  Receive Date: 20111202
  Receipt Date: 20111125
  Transmission Date: 20120403
  Serious: Yes (Other)
  Sender: FDA-Public Use
  Company Number: AU-JNJFOC-20111111623

PATIENT
  Sex: Female

DRUGS (6)
  1. STELARA [Suspect]
     Route: 058
     Dates: start: 20110810
  2. STELARA [Suspect]
     Indication: PSORIASIS
     Route: 058
     Dates: start: 20110518
  3. STELARA [Suspect]
     Route: 058
     Dates: start: 20111123
  4. STELARA [Suspect]
     Route: 058
     Dates: start: 20110223
  5. STELARA [Suspect]
     Route: 058
     Dates: start: 20101201
  6. STELARA [Suspect]
     Route: 058
     Dates: start: 20101101

REACTIONS (5)
  - ARTHRITIS [None]
  - ABDOMINAL HERNIA REPAIR [None]
  - FEELING HOT [None]
  - SKIN PLAQUE [None]
  - OEDEMA PERIPHERAL [None]
